FAERS Safety Report 10102953 (Version 2)
Quarter: 2014Q2

REPORT INFORMATION
  Report Type: Spontaneous
  Country: US (occurrence: US)
  Receive Date: 20140424
  Receipt Date: 20140424
  Transmission Date: 20141212
  Serious: No
  Sender: FDA-Public Use
  Company Number: US-BRISTOL-MYERS SQUIBB COMPANY-19990076

PATIENT
  Age: 68 Year
  Sex: Male

DRUGS (8)
  1. ELIQUIS [Suspect]
     Indication: ATRIAL FIBRILLATION
     Dates: start: 201311
  2. DOXYCYCLINE HYCLATE TABS 100MG [Concomitant]
  3. LATANOPROST [Concomitant]
     Dosage: LATANOPROST 0.005 96 SOLUTION 1DROP INTO AFFECTED EYE IN THE EVENINIG
  4. TIMOLOL MALEATE [Concomitant]
     Dosage: TIMOLOL MALEATE O.5 % SOLUTION 1 DROP INTO AFFECTED EYE
  5. METOPROLOL TARTRATE [Concomitant]
     Dosage: METOPROLOL TARTRATE 25MG TABLET TABLET
  6. LISINOPRIL [Concomitant]
     Dosage: 2.5 MG TABLET1TABLET QPM
  7. METFORMIN HCL TABS 500MG [Concomitant]
  8. PRAVASTATIN SODIUM [Concomitant]
     Dosage: TABS

REACTIONS (1)
  - Palpitations [Unknown]
